FAERS Safety Report 5002832-8 (Version None)
Quarter: 2006Q2

REPORT INFORMATION
  Report Type: 
  Country: None (occurrence: None)
  Receive Date: 20060512
  Receipt Date: 20060425
  Transmission Date: 20061013
  Serious: Yes (Death, Hospitalization)
  Sender: FDA-Public Use
  Company Number: US200603002704

PATIENT
  Sex: Male

DRUGS (1)
  1. FORTEO [Suspect]

REACTIONS (3)
  - ACCIDENTAL OVERDOSE [None]
  - CRYPTOCOCCOSIS [None]
  - PHARMACEUTICAL PRODUCT COMPLAINT [None]
